FAERS Safety Report 24699296 (Version 3)
Quarter: 2025Q3

REPORT INFORMATION
  Report Type: Report from Study
  Country: US (occurrence: US)
  Receive Date: 20241205
  Receipt Date: 20250811
  Transmission Date: 20251021
  Serious: Yes (Hospitalization)
  Sender: TAKEDA
  Company Number: US-TAKEDA-2024TUS109284

PATIENT
  Sex: Male

DRUGS (24)
  1. PONATINIB [Suspect]
     Active Substance: PONATINIB
     Indication: Acute lymphocytic leukaemia
     Dosage: 30 MILLIGRAM, QD
  2. PONATINIB [Suspect]
     Active Substance: PONATINIB
     Dosage: 30 MILLIGRAM, QD
  3. PONATINIB [Suspect]
     Active Substance: PONATINIB
     Dosage: 30 MILLIGRAM, QD
  4. PONATINIB [Suspect]
     Active Substance: PONATINIB
     Dosage: 30 MILLIGRAM, QD
  5. TYLENOL [Concomitant]
     Active Substance: ACETAMINOPHEN
  6. ONFI [Concomitant]
     Active Substance: CLOBAZAM
  7. ZYRTEC [Concomitant]
     Active Substance: CETIRIZINE HYDROCHLORIDE
  8. AMLODIPINE BESYLATE [Concomitant]
     Active Substance: AMLODIPINE BESYLATE
  9. CEFTIN [Concomitant]
     Active Substance: CEFUROXIME AXETIL
  10. TRAZODONE HCL [Concomitant]
     Active Substance: TRAZODONE HYDROCHLORIDE
  11. KENALOG [Concomitant]
     Active Substance: TRIAMCINOLONE ACETONIDE
  12. PEPCID RPD [Concomitant]
     Active Substance: FAMOTIDINE
  13. ASPIRIN [Concomitant]
     Active Substance: ASPIRIN
  14. ACYCLOVIR [Concomitant]
     Active Substance: ACYCLOVIR
  15. BACTRIM DS [Concomitant]
     Active Substance: SULFAMETHOXAZOLE\TRIMETHOPRIM
  16. FLUCONAZOLE [Concomitant]
     Active Substance: FLUCONAZOLE
  17. DEXAMETHASONE [Concomitant]
     Active Substance: DEXAMETHASONE
  18. CRESTOR [Concomitant]
     Active Substance: ROSUVASTATIN CALCIUM
  19. VIMPAT [Concomitant]
     Active Substance: LACOSAMIDE
  20. MIRALAX [Concomitant]
     Active Substance: POLYETHYLENE GLYCOL 3350
  21. LEXAPRO [Concomitant]
     Active Substance: ESCITALOPRAM OXALATE
  22. KEPPRA [Concomitant]
     Active Substance: LEVETIRACETAM
  23. PANTOPRAZOLE SODIUM [Concomitant]
     Active Substance: PANTOPRAZOLE SODIUM
  24. COMPAZINE [Concomitant]
     Active Substance: PROCHLORPERAZINE MALEATE

REACTIONS (6)
  - Mental disorder [Recovered/Resolved]
  - Confusional state [Recovered/Resolved]
  - Rash pruritic [Unknown]
  - Balance disorder [Unknown]
  - Peripheral swelling [Unknown]
  - Dizziness [Unknown]
